FAERS Safety Report 6907052-5 (Version None)
Quarter: 2010Q3

REPORT INFORMATION
  Report Type: 
  Country: None (occurrence: None)
  Receive Date: 20100804
  Receipt Date: 20080903
  Transmission Date: 20110219
  Serious: No
  Sender: FDA-Public Use
  Company Number: US-PFIZER INC-2007016900

PATIENT
  Sex: Male
  Weight: 85.28 kg

DRUGS (8)
  1. NARDIL [Suspect]
     Indication: DEPRESSION
     Dates: start: 19950101
  2. NARDIL [Suspect]
     Indication: ANXIETY
  3. ABILIFY [Concomitant]
  4. KLONOPIN [Concomitant]
  5. TAURINE [Concomitant]
  6. MAGNESIUM [Concomitant]
  7. THIAMINE [Concomitant]
  8. INOSITOL [Concomitant]

REACTIONS (10)
  - ABDOMINAL DISCOMFORT [None]
  - ANXIETY [None]
  - DISTURBANCE IN ATTENTION [None]
  - DRUG INEFFECTIVE [None]
  - FATIGUE [None]
  - INSOMNIA [None]
  - MALAISE [None]
  - PRURITUS [None]
  - RASH [None]
  - WEIGHT INCREASED [None]
